FAERS Safety Report 8121958-3 (Version None)
Quarter: 2012Q1

REPORT INFORMATION
  Report Type: 
  Country: None (occurrence: None)
  Receive Date: 20120207
  Receipt Date: 20120207
  Transmission Date: 20120608
  Serious: Yes (Hospitalization)
  Sender: FDA-Public Use
  Company Number: None

PATIENT
  Age: 51 Year
  Sex: Male

DRUGS (3)
  1. RIBAVIRIN [Suspect]
     Dosage: 600 MG BID PO
     Route: 048
     Dates: start: 20111122, end: 20120125
  2. PEGASYS [Suspect]
     Dosage: 90 MCG WEEKLY SUBCUTANEOUSLY
     Route: 058
     Dates: start: 20111122, end: 20120125
  3. INCIVEX [Concomitant]

REACTIONS (1)
  - PANCREATITIS [None]
